FAERS Safety Report 8918547 (Version 1)
Quarter: 2012Q4

REPORT INFORMATION
  Report Type: 
  Country: US (occurrence: US)
  Receive Date: 20121120
  Receipt Date: 20121120
  Transmission Date: 20130627
  Serious: No
  Sender: FDA-Public Use
  Company Number: US-ASTRAZENECA-2012SE18935

PATIENT
  Sex: Male

DRUGS (6)
  1. NEXIUM [Suspect]
     Indication: GASTROOESOPHAGEAL REFLUX DISEASE
     Route: 048
  2. NEXIUM [Suspect]
     Indication: MUCOSAL EROSION
     Route: 048
  3. NEXIUM [Suspect]
     Indication: GASTROOESOPHAGEAL REFLUX DISEASE
     Route: 048
  4. NEXIUM [Suspect]
     Indication: MUCOSAL EROSION
     Route: 048
  5. NEXIUM [Suspect]
     Indication: GASTROOESOPHAGEAL REFLUX DISEASE
     Dosage: 40 MG TWICE A DAY IF HE NEEDS
     Route: 048
  6. NEXIUM [Suspect]
     Indication: MUCOSAL EROSION
     Dosage: 40 MG TWICE A DAY IF HE NEEDS
     Route: 048

REACTIONS (3)
  - Erosive oesophagitis [Unknown]
  - Precancerous mucosal lesion [Unknown]
  - Off label use [Unknown]
